FAERS Safety Report 15296654 (Version 1)
Quarter: 2018Q3

REPORT INFORMATION
  Report Type: Spontaneous
  Country: US (occurrence: US)
  Receive Date: 20180820
  Receipt Date: 20180820
  Transmission Date: 20181010
  Serious: Yes (Other)
  Sender: FDA-Public Use
  Company Number: US-BAYER-2018-154300

PATIENT
  Age: 59 Year
  Sex: Male
  Weight: 105.99 kg

DRUGS (2)
  1. AFRIN NO DRIP ORIGINAL PUMP MIST [Suspect]
     Active Substance: OXYMETAZOLINE HYDROCHLORIDE
     Indication: HYPERSENSITIVITY
     Dosage: 1 DF, UNK
     Route: 055
     Dates: start: 201804
  2. AFRIN NO DRIP ORIGINAL PUMP MIST [Suspect]
     Active Substance: OXYMETAZOLINE HYDROCHLORIDE
     Indication: NASOPHARYNGITIS

REACTIONS (7)
  - Renal disorder [Recovered/Resolved]
  - Dehydration [Recovered/Resolved]
  - Dry mouth [Recovered/Resolved]
  - Underdose [Recovered/Resolved]
  - Dry skin [Recovered/Resolved]
  - Prostatomegaly [Recovered/Resolved]
  - Oral discomfort [Unknown]

NARRATIVE: CASE EVENT DATE: 201804
